FAERS Safety Report 12688508 (Version 2)
Quarter: 2016Q3

REPORT INFORMATION
  Report Type: Spontaneous
  Country: US (occurrence: US)
  Receive Date: 20160826
  Receipt Date: 20160826
  Transmission Date: 20161109
  Serious: Yes (Other)
  Sender: FDA-Public Use
  Company Number: US-CIPLA-2016US04192

PATIENT

DRUGS (1)
  1. TERBINAFINE. [Suspect]
     Active Substance: TERBINAFINE
     Indication: FUNGAL INFECTION
     Dosage: 250 MG, ONE TABLET, QD
     Route: 048
     Dates: start: 201603, end: 20160402

REACTIONS (1)
  - Ageusia [Not Recovered/Not Resolved]
